FAERS Safety Report 9521431 (Version 1)
Quarter: 2013Q1

REPORT INFORMATION
  Report Type: Spontaneous
  Country: US (occurrence: None)
  Receive Date: 20130305
  Receipt Date: 20130305
  Transmission Date: 20140127
  Serious: Yes (Other)
  Sender: FDA-Public Use
  Company Number: 163-21880-12072213

PATIENT
  Age: 71 Year
  Sex: Female
  Weight: 48.08 kg

DRUGS (10)
  1. REVLIMID [Suspect]
     Indication: PLASMA CELL MYELOMA
     Dosage: 15 MG, 21 IN 21 D, PO
     Route: 048
     Dates: start: 201205, end: 20120704
  2. DEXAMETHASONE (DEXAMETHASONE) (UNKNOWN) [Concomitant]
  3. NEURONTIN (GABAPENTIN) (UNKNOWN) [Concomitant]
  4. COMPAZINE (PROCHLORPERAZINE EDISYLATE) (UNKNOWN) [Concomitant]
  5. HYDROMORPHONE (HYDROMORPHONE) (UNKNOWN) (HYDROMORPHONE) [Concomitant]
  6. THYROID REPLACEMENT (OTHER THERAPEUTIC PRODUCTS) (UNKNOWN) [Concomitant]
  7. METOPROLOL (METOPROLOL) (UNKNOWN) [Concomitant]
  8. NEXIUM (ESOMEPRAZOLE) (UNKNOWN) [Concomitant]
  9. KCL (POTASSIUM CHLORIDE) (UNKNOWN) [Concomitant]
  10. ASPIRIN (UNKNOWN) [Concomitant]

REACTIONS (4)
  - Eye swelling [None]
  - Swollen tongue [None]
  - Lip swelling [None]
  - Rash erythematous [None]
